FAERS Safety Report 24108129 (Version 1)
Quarter: 2024Q3

REPORT INFORMATION
  Report Type: Spontaneous
  Country: US (occurrence: US)
  Receive Date: 20240718
  Receipt Date: 20240718
  Transmission Date: 20241017
  Serious: No
  Sender: AVERITAS
  Company Number: US-GRUNENTHAL-2024-117200

PATIENT
  Sex: Male

DRUGS (1)
  1. QUTENZA [Suspect]
     Active Substance: CAPSAICIN
     Indication: Neuropathy peripheral
     Dosage: UNK
     Route: 061
     Dates: start: 20240305, end: 20240305

REACTIONS (1)
  - Application site pain [Not Recovered/Not Resolved]
